FAERS Safety Report 25362368 (Version 1)
Quarter: 2025Q2

REPORT INFORMATION
  Report Type: Spontaneous
  Country: US (occurrence: None)
  Receive Date: 20250523
  Receipt Date: 20250523
  Transmission Date: 20250716
  Serious: Yes (Other)
  Sender: FDA-CTU
  Company Number: None

PATIENT
  Age: 92 Year
  Sex: Female
  Weight: 57.15 kg

DRUGS (1)
  1. MIRTAZAPINE [Suspect]
     Active Substance: MIRTAZAPINE
     Indication: Decreased appetite
     Dosage: 1 TABLET T BEDTIME ORAL
     Route: 048

REACTIONS (4)
  - Diplopia [None]
  - Hallucination [None]
  - Confusional state [None]
  - Illogical thinking [None]

NARRATIVE: CASE EVENT DATE: 20250423
